FAERS Safety Report 5918268-9 (Version None)
Quarter: 2008Q4

REPORT INFORMATION
  Report Type: 
  Country: None (occurrence: None)
  Receive Date: 20081014
  Receipt Date: 20081013
  Transmission Date: 20090506
  Serious: Yes (Death)
  Sender: FDA-Public Use
  Company Number: US-GILEAD-2008-0018529

PATIENT
  Sex: Male

DRUGS (10)
  1. LETAIRIS [Suspect]
     Dates: start: 20080508, end: 20080801
  2. AMLODIPINE [Concomitant]
  3. PRAVASTATIN [Concomitant]
  4. WARFARIN SODIUM [Concomitant]
  5. ZETIA [Concomitant]
  6. PLAVIX [Concomitant]
  7. STARLIX [Concomitant]
  8. FORTAMET [Concomitant]
  9. OXYCODONE HCL [Concomitant]
  10. ACIPHEX [Concomitant]

REACTIONS (1)
  - DEATH [None]
